FAERS Safety Report 16088450 (Version 4)
Quarter: 2019Q3

REPORT INFORMATION
  Report Type: Spontaneous
  Country: US (occurrence: US)
  Receive Date: 20190319
  Receipt Date: 20190718
  Transmission Date: 20191004
  Serious: Yes (Other)
  Sender: FDA-Public Use
  Company Number: US-PFIZER INC-2019105231

PATIENT
  Age: 66 Year
  Sex: Male

DRUGS (3)
  1. VIAGRA [Suspect]
     Active Substance: SILDENAFIL CITRATE
     Indication: BLOOD PRESSURE ABNORMAL
     Dosage: 50 MG, WHEN NEEDED
     Dates: start: 2018
  2. VIAGRA [Suspect]
     Active Substance: SILDENAFIL CITRATE
     Indication: ERECTILE DYSFUNCTION
  3. VIAGRA [Suspect]
     Active Substance: SILDENAFIL CITRATE
     Indication: CARDIAC DISORDER
     Dosage: 100 MG, UNK

REACTIONS (5)
  - Flushing [Recovered/Resolved]
  - Hiatus hernia [Unknown]
  - Drug effective for unapproved indication [Recovered/Resolved]
  - Off label use [Unknown]
  - Prescription drug used without a prescription [Unknown]

NARRATIVE: CASE EVENT DATE: 2018
